FAERS Safety Report 4661200-9 (Version None)
Quarter: 2005Q2

REPORT INFORMATION
  Report Type: 
  Country: None (occurrence: None)
  Receive Date: 20050513
  Receipt Date: 20050426
  Transmission Date: 20051028
  Serious: Yes (Hospitalization)
  Sender: FDA-Public Use
  Company Number: US-BOEHRINGER INGELHEIM PHARMACEUTICALS, INC.-2005-BP-06974BP

PATIENT
  Age: 83 Year
  Sex: Male

DRUGS (9)
  1. FLOMAX [Suspect]
     Indication: BLADDER DISORDER
     Route: 048
     Dates: start: 20020301
  2. FLOMAX [Suspect]
     Indication: URINARY RETENTION
  3. DAPSONE [Concomitant]
     Indication: DERMATITIS
  4. TRAVATAN [Concomitant]
     Indication: GLAUCOMA
  5. ALTACE [Concomitant]
     Indication: HYPERTENSION
  6. FOLIC ACID [Concomitant]
  7. B12 [Concomitant]
     Dosage: ONCE A MONTH
     Route: 030
  8. VITAMIN [Concomitant]
  9. MIACALCIN [Concomitant]

REACTIONS (3)
  - IRIS DISORDER [None]
  - MACULAR OEDEMA [None]
  - PUPILS UNEQUAL [None]
